FAERS Safety Report 25379927 (Version 1)
Quarter: 2025Q2

REPORT INFORMATION
  Report Type: Spontaneous
  Country: US (occurrence: None)
  Receive Date: 20250530
  Receipt Date: 20250530
  Transmission Date: 20250717
  Serious: Yes (Disabling)
  Sender: FDA-CTU
  Company Number: None

PATIENT
  Age: 65 Year
  Sex: Female
  Weight: 68.04 kg

DRUGS (15)
  1. EZETIMIBE [Suspect]
     Active Substance: EZETIMIBE
     Indication: Blood cholesterol increased
     Dosage: FREQUENCY : DAILY;?
     Route: 048
     Dates: start: 20250321, end: 20250505
  2. SERTRALINE [Concomitant]
     Active Substance: SERTRALINE HYDROCHLORIDE
  3. AMLODIPINE BESYLATE [Concomitant]
     Active Substance: AMLODIPINE BESYLATE
  4. LISINOPRIL [Concomitant]
     Active Substance: LISINOPRIL
  5. GABAPENTIN [Concomitant]
     Active Substance: GABAPENTIN
  6. FLONASE AS NEEDED [Concomitant]
  7. SAMBUCDAS SPRAY [Concomitant]
  8. VITAMIN C [Concomitant]
     Active Substance: ASCORBIC ACID
  9. PROBIOTIC/DIGESTIVE ENZYME [Concomitant]
  10. MULTIVITAMIN/MINERAL GUMMIES [Concomitant]
  11. CALCIUM\MAGNESIUM [Concomitant]
     Active Substance: CALCIUM\MAGNESIUM
  12. ZINC [Concomitant]
     Active Substance: ZINC
  13. FISH OIL [Concomitant]
     Active Substance: FISH OIL
  14. STOOL SOFTNER AS NEEDED [Concomitant]
  15. PUCKS PM (CBD/THC) [Concomitant]

REACTIONS (5)
  - Nausea [None]
  - Abdominal discomfort [None]
  - Abdominal pain [None]
  - Diarrhoea [None]
  - Drug hypersensitivity [None]

NARRATIVE: CASE EVENT DATE: 20250414
